FAERS Safety Report 11018452 (Version 2)
Quarter: 2015Q2

REPORT INFORMATION
  Report Type: Spontaneous
  Country: US (occurrence: US)
  Receive Date: 20150412
  Receipt Date: 20150524
  Transmission Date: 20150821
  Serious: Yes (Other)
  Sender: FDA-Public Use
  Company Number: US-JNJFOC-20121200128

PATIENT
  Age: 52 Year
  Sex: Female

DRUGS (2)
  1. AVASTIN [Suspect]
     Active Substance: BEVACIZUMAB
     Indication: OVARIAN EPITHELIAL CANCER
     Dosage: (BEGINNING ON CYCLE 2) EVERY 3 WEEKS
     Route: 041
     Dates: start: 20100416, end: 20100416
  2. DOXIL [Suspect]
     Active Substance: DOXORUBICIN HYDROCHLORIDE
     Indication: OVARIAN EPITHELIAL CANCER
     Dosage: IN FIRST CYCLE THE PLD WAS ADMINISTERED AS A SINGLE AGENT.
     Route: 042
     Dates: start: 20100326, end: 20100416

REACTIONS (1)
  - Vomiting [Unknown]
